FAERS Safety Report 11364611 (Version 1)
Quarter: 2015Q3

REPORT INFORMATION
  Report Type: Spontaneous
  Country: None (occurrence: None)
  Receive Date: 20150810
  Receipt Date: 20150810
  Transmission Date: 20151125
  Serious: Yes (Other)
  Sender: FDA-Public Use
  Company Number: None

PATIENT
  Age: 57 Year
  Sex: Female
  Weight: 96 kg

DRUGS (9)
  1. KALKBALANCE (CONTAINES KALK, MAGNESIUM, VITAMIN D3 AND K2) [Concomitant]
  2. MEGA B-STRESS (CONTAINES B 3,5,1,2,6,12, VITAMIN C, BIOTIN FOLAT, MAGNESIUM) [Concomitant]
  3. OXYCODONHYDROCHLORID [Concomitant]
  4. SYMBICORT [Concomitant]
     Active Substance: BUDESONIDE\FORMOTEROL FUMARATE DIHYDRATE
  5. PAMOL [Concomitant]
     Active Substance: ACETAMINOPHEN
  6. PANODIL [Concomitant]
     Active Substance: ACETAMINOPHEN
  7. SINGULAIR [Concomitant]
     Active Substance: MONTELUKAST SODIUM
  8. LOSARTAN. [Suspect]
     Active Substance: LOSARTAN
     Indication: HYPERTENSION
     Route: 048
     Dates: start: 20140624, end: 20140820
  9. DANDELION [Concomitant]
     Active Substance: TARAXACUM OFFICINALE POLLEN

REACTIONS (6)
  - Loss of consciousness [None]
  - Crying [None]
  - Panic attack [None]
  - Feeling abnormal [None]
  - Fear [None]
  - Anxiety [None]

NARRATIVE: CASE EVENT DATE: 20140630
